FAERS Safety Report 6944668-4 (Version None)
Quarter: 2010Q3

REPORT INFORMATION
  Report Type: 
  Country: None (occurrence: None)
  Receive Date: 20100823
  Receipt Date: 20090625
  Transmission Date: 20110219
  Serious: Yes (Other)
  Sender: FDA-Public Use
  Company Number: UK-2009-00206

PATIENT
  Age: 68 Year
  Sex: Female
  Weight: 89.5 kg

DRUGS (5)
  1. LISINOPRIL [Suspect]
     Indication: HYPERTENSION
     Dosage: 5 MG (1 IN 1 D), ORAL
     Route: 048
     Dates: start: 20090324, end: 20091004
  2. CANDESARTAN CILEXETIL [Suspect]
     Indication: HYPERTENSION
     Dosage: 4 MG (1 IN 1 D), ORAL
     Route: 048
     Dates: start: 20090101, end: 20090430
  3. BENDROFLUMETHIAZIDE (BENDROFLUAZIDE) (UNKNOWN) [Concomitant]
  4. DIHYDROCODEINE TARTRATE AND PARACETAMOL [Concomitant]
  5. OMEPRAZOLE (UNKNOWN) [Concomitant]

REACTIONS (6)
  - INSOMNIA [None]
  - MYALGIA [None]
  - ORAL PAIN [None]
  - OROPHARYNGEAL BLISTERING [None]
  - STRESS [None]
  - TONGUE BLISTERING [None]
